FAERS Safety Report 8777400 (Version 2)
Quarter: 2012Q4

REPORT INFORMATION
  Report Type: 
  Country: US (occurrence: US)
  Receive Date: 20120911
  Receipt Date: 20120911
  Transmission Date: 20130627
  Serious: Yes (Hospitalization)
  Sender: FDA-Public Use
  Company Number: US-PFIZER INC-K200900264

PATIENT
  Age: 53 Year
  Sex: Female

DRUGS (22)
  1. SILVADENE [Suspect]
     Indication: LOCALISED INFECTION
     Dosage: UNK
     Route: 061
     Dates: start: 200811
  2. SILVADENE [Suspect]
     Indication: POST PROCEDURAL INFECTION
  3. ZOSYN [Suspect]
     Indication: LOCALISED INFECTION
     Dosage: UNK
     Route: 042
     Dates: start: 20081222, end: 20081224
  4. ZOSYN [Suspect]
     Indication: POST PROCEDURAL INFECTION
  5. VANCOMYCIN HCL [Suspect]
     Indication: SEPSIS
     Dosage: UNK
     Route: 042
     Dates: start: 20081222, end: 20081228
  6. VANCOMYCIN HCL [Suspect]
     Indication: LOCALISED INFECTION
  7. VANCOMYCIN HCL [Suspect]
     Indication: POST PROCEDURAL INFECTION
  8. REBIF [Suspect]
     Indication: MULTIPLE SCLEROSIS
     Dosage: 44 ug, 3x/week
     Route: 058
     Dates: start: 20060206, end: 20081226
  9. BONIVA [Suspect]
  10. CIPRO [Suspect]
     Indication: SEPSIS
     Dosage: UNK
     Route: 042
     Dates: start: 20081224, end: 20081228
  11. PREDNISONE [Concomitant]
     Indication: SYSTEMIC LUPUS ERYTHEMATOSUS
     Dosage: 10 mg, UNK
     Route: 048
  12. ALBUTEROL /00139502/ [Concomitant]
     Indication: ASTHMA
     Dosage: UNK
     Route: 055
  13. TYLENOL /00020001/ [Concomitant]
     Indication: PREMEDICATION
     Dosage: UNK
  14. ASMANEX [Concomitant]
     Indication: ASTHMA
     Dosage: 1 DF, 1x/day
     Route: 055
  15. ATIVAN [Concomitant]
     Dosage: 0.5 mg, as needed
     Route: 048
  16. ELAVIL /00002202/ [Concomitant]
     Dosage: 10 mg, 1x/day
     Route: 048
  17. FLONASE [Concomitant]
     Dosage: 1 DF, each nostril, 1x/day
     Route: 045
  18. LABETALOL [Concomitant]
     Indication: HYPERTENSION
     Dosage: 200 mg, 2x/day
     Route: 048
  19. LISINOPRIL [Concomitant]
     Dosage: 10 mg, 1x/day
     Route: 048
  20. VALTREX [Concomitant]
     Dosage: 500 mg, as needed
     Route: 048
  21. VICODIN [Concomitant]
     Dosage: UNK
     Route: 048
  22. COTYLENOL [Concomitant]

REACTIONS (12)
  - Renal failure acute [Recovered/Resolved]
  - Blood pressure increased [Recovered/Resolved]
  - Systemic lupus erythematosus [Recovered/Resolved]
  - Condition aggravated [Unknown]
  - Glomerulosclerosis [Unknown]
  - Autoimmune hepatitis [Unknown]
  - Sepsis [Recovered/Resolved]
  - Hypergammaglobulinaemia benign monoclonal [Unknown]
  - Clostridium difficile infection [Unknown]
  - Wound [Recovered/Resolved]
  - Headache [Unknown]
  - Skin necrosis [Recovered/Resolved]
